FAERS Safety Report 5672678-6 (Version None)
Quarter: 2008Q1

REPORT INFORMATION
  Report Type: 
  Country: None (occurrence: None)
  Receive Date: 20080319
  Receipt Date: 20070821
  Transmission Date: 20080703
  Serious: Yes (Other)
  Sender: FDA-Public Use
  Company Number: US-KINGPHARMUSA00001-K200701069

PATIENT

DRUGS (7)
  1. ALTACE [Suspect]
     Dates: start: 20050101
  2. SUPER POLYGRIP COMFORT SEAL STRIPS [Suspect]
     Indication: TOOTH DISORDER
     Route: 004
     Dates: start: 20070805, end: 20070806
  3. VIGAMOX [Concomitant]
  4. PREDNISOLONE [Concomitant]
  5. ACULAR                             /01001802/ [Concomitant]
  6. VEXOL [Concomitant]
  7. ROBITUSSIN DM        /00288801/ [Concomitant]

REACTIONS (7)
  - ANGIOEDEMA [None]
  - COUGH [None]
  - ERYTHEMA [None]
  - HYPERSENSITIVITY [None]
  - LIP SWELLING [None]
  - PHARYNGOLARYNGEAL PAIN [None]
  - SWELLING FACE [None]
